APPROVED DRUG PRODUCT: PEDIATRIC ADVIL
Active Ingredient: IBUPROFEN
Strength: 100MG/2.5ML
Dosage Form/Route: SUSPENSION/DROPS;ORAL
Application: N020812 | Product #001
Applicant: HALEON US HOLDINGS LLC
Approved: Jan 30, 1998 | RLD: Yes | RS: No | Type: DISCN